FAERS Safety Report 14850736 (Version 2)
Quarter: 2018Q2

REPORT INFORMATION
  Report Type: Spontaneous
  Country: US (occurrence: US)
  Receive Date: 20180506
  Receipt Date: 20180625
  Transmission Date: 20180711
  Serious: No
  Sender: FDA-Public Use
  Company Number: US-JNJFOC-20180423863

PATIENT
  Age: 82 Year
  Sex: Female

DRUGS (1)
  1. XARELTO [Suspect]
     Active Substance: RIVAROXABAN
     Indication: STENT PLACEMENT
     Route: 048
     Dates: start: 201803, end: 20180417

REACTIONS (8)
  - Cough [Not Recovered/Not Resolved]
  - Nervousness [Recovering/Resolving]
  - Multiple allergies [Unknown]
  - Product use complaint [Unknown]
  - Off label use [Unknown]
  - Product use in unapproved indication [Unknown]
  - Product label issue [Unknown]
  - Fatigue [Not Recovered/Not Resolved]

NARRATIVE: CASE EVENT DATE: 2018
